FAERS Safety Report 11300875 (Version 1)
Quarter: 2015Q3

REPORT INFORMATION
  Report Type: Spontaneous
  Country: US (occurrence: US)
  Receive Date: 20150722
  Receipt Date: 20150722
  Transmission Date: 20151125
  Serious: No
  Sender: FDA-Public Use
  Company Number: US-ELI_LILLY_AND_COMPANY-US201404006695

PATIENT
  Sex: Male

DRUGS (2)
  1. HGH [Concomitant]
     Indication: GROWTH RETARDATION
     Dosage: UNK, UNKNOWN
     Route: 065
     Dates: start: 2007
  2. HUMATROPE [Suspect]
     Active Substance: SOMATROPIN
     Indication: GROWTH RETARDATION
     Dosage: 3.6/DAY
     Route: 065

REACTIONS (1)
  - Joint swelling [Unknown]
